FAERS Safety Report 18527453 (Version 2)
Quarter: 2020Q4

REPORT INFORMATION
  Report Type: Spontaneous
  Country: US (occurrence: US)
  Receive Date: 20201120
  Receipt Date: 20201201
  Transmission Date: 20210114
  Serious: Yes (Death, Other)
  Sender: FDA-Public Use
  Company Number: US-PFIZER INC-2019021916

PATIENT
  Age: 61 Year
  Sex: Male
  Weight: 86.6 kg

DRUGS (8)
  1. RAPAMUNE [Suspect]
     Active Substance: SIROLIMUS
     Indication: CARDIOMYOPATHY
     Dosage: 11 MG, WEEKLY
     Route: 048
     Dates: start: 20190404
  2. RAPAMUNE [Suspect]
     Active Substance: SIROLIMUS
     Dosage: 4 MG, WEEKLY [1MG TABLET BY MOUTH SUNDAY, TUESDAY, THURSDAY, AND SATURDAY]
     Route: 048
  3. RAPAMUNE [Suspect]
     Active Substance: SIROLIMUS
     Dosage: 10 MG, WEEKLY [1MG SUNDAY, TUESDAY, THURSDAY, SATURDAY, AND 2MG IN A DIFFERENT BOTTLE, MONDAY, WEDNE
  4. TACROLIMUS [TACROLIMUS MONOHYDRATE] [Concomitant]
     Active Substance: TACROLIMUS
     Dosage: UNK
  5. RAPAMUNE [Suspect]
     Active Substance: SIROLIMUS
     Dosage: 16 MG, WEEKLY
     Route: 048
  6. RAPAMUNE [Suspect]
     Active Substance: SIROLIMUS
     Indication: HEART TRANSPLANT
     Dosage: 9 MG, WEEKLY
     Route: 048
     Dates: start: 20110423
  7. RAPAMUNE [Suspect]
     Active Substance: SIROLIMUS
     Dosage: 13 MG, WEEKLY
     Dates: start: 20190429
  8. RAPAMUNE [Suspect]
     Active Substance: SIROLIMUS
     Dosage: 10 MG, WEEKLY
     Route: 048

REACTIONS (16)
  - Empyema [Fatal]
  - End stage renal disease [Fatal]
  - Product use in unapproved indication [Unknown]
  - Pleural effusion [Unknown]
  - Off label use [Unknown]
  - Coronary artery disease [Fatal]
  - Rhinovirus infection [Unknown]
  - Pneumonia [Unknown]
  - Weight decreased [Unknown]
  - Cardiac failure [Fatal]
  - Cardiogenic shock [Fatal]
  - Diabetes mellitus [Fatal]
  - Ischaemic cardiomyopathy [Fatal]
  - Anaemia [Fatal]
  - Sepsis [Unknown]
  - Ventricular tachycardia [Fatal]

NARRATIVE: CASE EVENT DATE: 20110423
